FAERS Safety Report 4285652-1 (Version None)
Quarter: 2004Q1

REPORT INFORMATION
  Report Type: 
  Country: None (occurrence: None)
  Receive Date: 20040203
  Receipt Date: 20040129
  Transmission Date: 20041129
  Serious: Yes (Hospitalization)
  Sender: FDA-Public Use
  Company Number: DE-JNJFOC-20040106029

PATIENT
  Age: 39 Year
  Sex: Male
  Weight: 107 kg

DRUGS (4)
  1. RISPERDAL CONSTA [Suspect]
     Indication: SCHIZOPHRENIA, PARANOID TYPE
     Dosage: SEE IMAGE
     Route: 030
     Dates: start: 20030520, end: 20030617
  2. RISPERDAL CONSTA [Suspect]
     Indication: SCHIZOPHRENIA, PARANOID TYPE
     Dosage: SEE IMAGE
     Route: 030
     Dates: start: 20030701
  3. METOPROLOL SUCCINATE [Concomitant]
  4. FLUVOXAMIN (FLUVOXAMINE) [Concomitant]

REACTIONS (1)
  - HOSPITALISATION [None]
